FAERS Safety Report 8454882-7 (Version None)
Quarter: 2012Q2

REPORT INFORMATION
  Report Type: 
  Country: None (occurrence: None)
  Receive Date: 20120621
  Receipt Date: 20120614
  Transmission Date: 20120825
  Serious: Yes (Hospitalization)
  Sender: FDA-Public Use
  Company Number: JP-SANOFI-AVENTIS-2011SA059126

PATIENT
  Age: 69 Year
  Sex: Male
  Weight: 65.4 kg

DRUGS (23)
  1. CABAZITAXEL [Suspect]
     Indication: PROSTATE CANCER
     Route: 042
     Dates: start: 20110802, end: 20110802
  2. KETOPROFEN [Concomitant]
     Dates: start: 20110807, end: 20110818
  3. URSODIOL [Concomitant]
     Route: 048
     Dates: start: 20050101
  4. RANITIDINE [Concomitant]
     Indication: PREMEDICATION
     Route: 041
     Dates: start: 20110802, end: 20110802
  5. DEXAMETHASONE SODIUM POSPHATE [Concomitant]
     Indication: PREMEDICATION
     Route: 041
     Dates: start: 20110802, end: 20110802
  6. LEVOFLOXACIN [Concomitant]
     Route: 048
     Dates: start: 20110831, end: 20110906
  7. AZOSEMIDE [Concomitant]
     Route: 048
     Dates: start: 20090401
  8. OXETHAZINE [Concomitant]
     Route: 048
     Dates: start: 20050101
  9. DEXAMETHASONE SODIUM POSPHATE [Concomitant]
     Route: 041
     Dates: start: 20110823, end: 20110823
  10. CABAZITAXEL [Suspect]
     Route: 042
     Dates: start: 20110823, end: 20110823
  11. PREDNISOLONE [Suspect]
     Indication: PROSTATE CANCER
     Dates: start: 20110802, end: 20110915
  12. MAGNESIUM OXIDE [Concomitant]
     Route: 048
     Dates: start: 20110803
  13. DIGOXIN [Concomitant]
     Route: 048
     Dates: start: 20080101
  14. TIOTROPIUM BROMIDE [Concomitant]
     Route: 048
     Dates: start: 20070101
  15. GLYCERIN [Concomitant]
     Dates: start: 20110815, end: 20110908
  16. SITAGLIPTIN PHOSPHATE [Concomitant]
     Route: 048
     Dates: start: 20100101
  17. HACHIAZULE [Concomitant]
     Route: 048
     Dates: start: 20110815, end: 20110908
  18. AMBROXOL HYDROCHLORIDE [Concomitant]
     Route: 048
     Dates: start: 20070101
  19. CEFAZOLIN SODIUM [Concomitant]
     Route: 048
     Dates: start: 20110831, end: 20110906
  20. FAMOTIDINE [Concomitant]
     Route: 048
     Dates: start: 20110210
  21. CHLORPHENIRAMINE MALEATE [Concomitant]
     Indication: PREMEDICATION
     Route: 041
     Dates: start: 20110802, end: 20110802
  22. CHLORPHENIRAMINE MALEATE [Concomitant]
     Route: 041
     Dates: start: 20110823, end: 20110823
  23. RANITIDINE [Concomitant]
     Route: 041
     Dates: start: 20110823, end: 20110823

REACTIONS (2)
  - DEEP VEIN THROMBOSIS [None]
  - PULMONARY EMBOLISM [None]
